FAERS Safety Report 6623316-7 (Version None)
Quarter: 2010Q1

REPORT INFORMATION
  Report Type: 
  Country: None (occurrence: None)
  Receive Date: 20100310
  Receipt Date: 20091130
  Transmission Date: 20100710
  Serious: No
  Sender: FDA-Public Use
  Company Number: US-BIOGENIDEC-2009BI038831

PATIENT
  Age: 59 Year
  Sex: Female

DRUGS (2)
  1. AVONEX [Suspect]
     Indication: MULTIPLE SCLEROSIS
     Route: 030
     Dates: start: 20020901, end: 20030101
  2. AVONEX [Suspect]
     Route: 030
     Dates: start: 20030101, end: 20060101

REACTIONS (5)
  - DRUG SPECIFIC ANTIBODY PRESENT [None]
  - EAR DISCOMFORT [None]
  - FACIAL NEURALGIA [None]
  - FACIAL PALSY [None]
  - MULTIPLE SCLEROSIS [None]
